FAERS Safety Report 9998503 (Version 1)
Quarter: 2014Q1

REPORT INFORMATION
  Report Type: Spontaneous
  Country: US (occurrence: US)
  Receive Date: 20140312
  Receipt Date: 20140312
  Transmission Date: 20141002
  Serious: No
  Sender: FDA-Public Use
  Company Number: US-BIOGENIDEC-2014BI018638

PATIENT
  Age: 38 Year
  Sex: Female
  Weight: 79 kg

DRUGS (13)
  1. TECFIDERA [Suspect]
     Indication: MULTIPLE SCLEROSIS
     Route: 048
     Dates: start: 201311
  2. TECFIDERA [Suspect]
     Indication: MULTIPLE SCLEROSIS
     Route: 048
     Dates: start: 201311, end: 20140213
  3. LEXAPRO [Concomitant]
  4. FLEXERIL [Concomitant]
  5. CLONOPIN [Concomitant]
  6. MOBIC [Concomitant]
  7. PREVACID OTC [Concomitant]
  8. ZYRTEC [Concomitant]
  9. NEURONTIN [Concomitant]
  10. VITAMIN C [Concomitant]
  11. VITAMIN 03 [Concomitant]
  12. MELATONIN [Concomitant]
  13. BIOTIN [Concomitant]

REACTIONS (11)
  - Cognitive disorder [Not Recovered/Not Resolved]
  - Mobility decreased [Not Recovered/Not Resolved]
  - Hypersomnia [Not Recovered/Not Resolved]
  - Decreased appetite [Not Recovered/Not Resolved]
  - Weight decreased [Not Recovered/Not Resolved]
  - Intentional underdose [Recovered/Resolved]
  - Influenza [Unknown]
  - Pyrexia [Unknown]
  - Wheezing [Unknown]
  - Cough [Unknown]
  - Secretion discharge [Unknown]
